FAERS Safety Report 13622813 (Version 1)
Quarter: 2017Q2

REPORT INFORMATION
  Report Type: Spontaneous
  Country: US (occurrence: US)
  Receive Date: 20170607
  Receipt Date: 20170607
  Transmission Date: 20170830
  Serious: Yes (Hospitalization, Other)
  Sender: FDA-Public Use
  Company Number: US-BEH-2017081017

PATIENT
  Age: 21 Year
  Sex: Female
  Weight: 45.35 kg

DRUGS (19)
  1. LEVAQUIN [Concomitant]
     Active Substance: LEVOFLOXACIN
  2. PROAIR HFA [Concomitant]
     Active Substance: ALBUTEROL SULFATE
  3. CORTEF [Concomitant]
     Active Substance: HYDROCORTISONE
  4. PHENERGAN [Concomitant]
     Active Substance: PROMETHAZINE HYDROCHLORIDE
  5. EPIPEN [Concomitant]
     Active Substance: EPINEPHRINE
  6. ZOFRAN [Concomitant]
     Active Substance: ONDANSETRON HYDROCHLORIDE
  7. NORCO [Concomitant]
     Active Substance: ACETAMINOPHEN\HYDROCODONE BITARTRATE
  8. SODIUM CHLORIDE. [Concomitant]
     Active Substance: SODIUM CHLORIDE
  9. SOLU-MEDROL [Concomitant]
     Active Substance: METHYLPREDNISOLONE SODIUM SUCCINATE
  10. FLUDROCORTISONE [Concomitant]
     Active Substance: FLUDROCORTISONE
  11. ALBUTEROL                          /00139501/ [Concomitant]
     Active Substance: ALBUTEROL
  12. HEPARIN [Concomitant]
     Active Substance: HEPARIN SODIUM
  13. SYMBICORT [Concomitant]
     Active Substance: BUDESONIDE\FORMOTEROL FUMARATE DIHYDRATE
  14. NEXIUM [Concomitant]
     Active Substance: ESOMEPRAZOLE MAGNESIUM
  15. TRANEXAMIC [Concomitant]
  16. BERINERT [Suspect]
     Active Substance: HUMAN C1-ESTERASE INHIBITOR
     Indication: HEREDITARY ANGIOEDEMA
     Dosage: 1000 IU, AS DIRECTED
     Route: 042
     Dates: start: 20150324
  17. BERINERT [Suspect]
     Active Substance: HUMAN C1-ESTERASE INHIBITOR
     Dosage: UNK
     Route: 042
  18. NORMAL SALINE [Concomitant]
     Active Substance: SODIUM CHLORIDE
  19. DIPHENHYDRAMINE. [Concomitant]
     Active Substance: DIPHENHYDRAMINE

REACTIONS (2)
  - Hereditary angioedema [Unknown]
  - Sepsis [Unknown]

NARRATIVE: CASE EVENT DATE: 201703
